FAERS Safety Report 9813519 (Version 1)
Quarter: 2014Q1

REPORT INFORMATION
  Report Type: Spontaneous
  Country: US (occurrence: None)
  Receive Date: 20140109
  Receipt Date: 20140109
  Transmission Date: 20141002
  Serious: Yes (Hospitalization)
  Sender: FDA-Public Use
  Company Number: None

PATIENT
  Age: 66 Year
  Sex: Female
  Weight: 63.6 kg

DRUGS (1)
  1. BEVACIZUMAB (RHUMAB VEGF) (704865) [Suspect]

REACTIONS (8)
  - Anaemia [None]
  - Sepsis [None]
  - Pneumonia [None]
  - Sinus tachycardia [None]
  - Atrial fibrillation [None]
  - Deep vein thrombosis [None]
  - Respiratory distress [None]
  - Embolic stroke [None]
